FAERS Safety Report 4998140-1 (Version None)
Quarter: 2006Q2

REPORT INFORMATION
  Report Type: 
  Country: None (occurrence: None)
  Receive Date: 20060510
  Receipt Date: 20051109
  Transmission Date: 20061013
  Serious: Yes (Hospitalization)
  Sender: FDA-Public Use
  Company Number: US-MERCK-0511USA01589

PATIENT
  Age: 77 Year
  Sex: Female
  Weight: 64 kg

DRUGS (11)
  1. VIOXX [Suspect]
     Indication: ARTHRITIS
     Route: 048
     Dates: start: 20030124, end: 20040930
  2. VIOXX [Suspect]
     Indication: OSTEOARTHRITIS
     Route: 048
     Dates: start: 20030124, end: 20040930
  3. VIOXX [Suspect]
     Route: 048
     Dates: start: 20030124, end: 20040930
  4. GLUCOPHAGE [Concomitant]
     Route: 065
  5. AMARYL [Concomitant]
     Route: 065
  6. LEVOTHROID [Concomitant]
     Route: 065
  7. NOVOLIN [Concomitant]
     Route: 065
  8. LEVOXYL [Concomitant]
     Route: 065
  9. NIASPAN [Concomitant]
     Route: 065
  10. COZAAR [Concomitant]
     Route: 065
  11. ATENOLOL [Concomitant]
     Route: 065

REACTIONS (7)
  - ACUTE MYOCARDIAL INFARCTION [None]
  - AORTIC VALVE INCOMPETENCE [None]
  - CORONARY ARTERY STENOSIS [None]
  - MITRAL VALVE INCOMPETENCE [None]
  - PULMONARY HYPERTENSION [None]
  - TRICUSPID VALVE INCOMPETENCE [None]
  - VENTRICULAR DYSFUNCTION [None]
